FAERS Safety Report 6242353-8 (Version None)
Quarter: 2009Q2

REPORT INFORMATION
  Report Type: 
  Country: None (occurrence: None)
  Receive Date: 20090624
  Receipt Date: 20090616
  Transmission Date: 20091009
  Serious: Yes (Hospitalization)
  Sender: FDA-Public Use
  Company Number: US-WYE-H09773909

PATIENT
  Sex: Male
  Weight: 90.8 kg

DRUGS (4)
  1. TYGACIL [Suspect]
     Indication: STAPHYLOCOCCAL INFECTION
     Route: 042
     Dates: start: 20090606, end: 20090611
  2. TYGACIL [Suspect]
     Indication: ABSCESS LIMB
  3. GLUCOPHAGE [Concomitant]
     Dosage: UNKNOWN
  4. GLIPIZIDE [Concomitant]
     Dosage: UNKNOWN

REACTIONS (5)
  - DEHYDRATION [None]
  - LETHARGY [None]
  - RASH ERYTHEMATOUS [None]
  - RASH PRURITIC [None]
  - RENAL FAILURE ACUTE [None]
